FAERS Safety Report 17845044 (Version 1)
Quarter: 2020Q2

REPORT INFORMATION
  Report Type: Spontaneous
  Country: US (occurrence: US)
  Receive Date: 20200529
  Receipt Date: 20200529
  Transmission Date: 20200714
  Serious: Yes (Other)
  Sender: FDA-Public Use
  Company Number: None

PATIENT
  Age: 41 Year
  Sex: Female
  Weight: 68.4 kg

DRUGS (1)
  1. AJOVY [Suspect]
     Active Substance: FREMANEZUMAB-VFRM
     Indication: MIGRAINE
     Dosage: ?          QUANTITY:1 INJECTION(S);OTHER FREQUENCY:ONE INJECTION MONT;?
     Route: 058
     Dates: start: 20200114, end: 20200514

REACTIONS (3)
  - Weight increased [None]
  - Constipation [None]
  - Rash pruritic [None]

NARRATIVE: CASE EVENT DATE: 20200202
